FAERS Safety Report 14009717 (Version 1)
Quarter: 2017Q3

REPORT INFORMATION
  Report Type: Spontaneous
  Country: CH (occurrence: CH)
  Receive Date: 20170925
  Receipt Date: 20170925
  Transmission Date: 20171128
  Serious: Yes (Other)
  Sender: FDA-Public Use
  Company Number: CH-SIM_00773_2017

PATIENT
  Sex: Female

DRUGS (1)
  1. ENTZUNDETE AUGEN, AUGENTROPFEN MONODOSEN (HOMEOPATHIC) [Suspect]
     Active Substance: HOMEOPATHICS
     Indication: PRODUCT USED FOR UNKNOWN INDICATION
     Dosage: NI/NI/
     Route: 047

REACTIONS (2)
  - Eye swelling [Recovered/Resolved]
  - Blindness [Recovered/Resolved]
